FAERS Safety Report 8431960-X (Version None)
Quarter: 2012Q2

REPORT INFORMATION
  Report Type: 
  Country: None (occurrence: None)
  Receive Date: 20120613
  Receipt Date: 20110815
  Transmission Date: 20120825
  Serious: No
  Sender: FDA-Public Use
  Company Number: US-ASTRAZENECA-2011SE43161

PATIENT
  Age: 63 Year
  Sex: Female

DRUGS (3)
  1. NEXIUM [Suspect]
     Route: 048
  2. PRILOSEC [Suspect]
     Route: 048
  3. RHINOCORT [Suspect]
     Dosage: TWO SPARYS IN EACH NOSTRIL PER DAY
     Route: 045

REACTIONS (8)
  - HEADACHE [None]
  - COUGH [None]
  - DRUG HYPERSENSITIVITY [None]
  - ALLERGIC SINUSITIS [None]
  - INCREASED UPPER AIRWAY SECRETION [None]
  - EAR CONGESTION [None]
  - NASAL CONGESTION [None]
  - DIZZINESS [None]
